FAERS Safety Report 9630135 (Version 2)
Quarter: 2014Q1

REPORT INFORMATION
  Report Type: Report from Study
  Country: BR (occurrence: BR)
  Receive Date: 20131017
  Receipt Date: 20140220
  Transmission Date: 20141002
  Serious: Yes (Other)
  Sender: FDA-Public Use
  Company Number: PHHY2013BR116739

PATIENT
  Sex: Female

DRUGS (3)
  1. ACLASTA [Suspect]
     Dosage: 5 MG, UNK
     Route: 042
     Dates: start: 2012
  2. VYTORIN [Concomitant]
     Indication: BLOOD CHOLESTEROL ABNORMAL
     Dosage: UNK UKN, UNK
  3. XALATAN [Concomitant]
     Indication: OCULAR HYPERTENSION
     Dosage: UNK UKN, UNK
     Dates: start: 2011

REACTIONS (2)
  - Cataract [Recovered/Resolved]
  - Back pain [Recovered/Resolved]
